FAERS Safety Report 20456831 (Version 1)
Quarter: 2022Q1

REPORT INFORMATION
  Report Type: Spontaneous
  Country: US (occurrence: US)
  Receive Date: 20220210
  Receipt Date: 20220210
  Transmission Date: 20220424
  Serious: No
  Sender: FDA-Public Use
  Company Number: US-PERRIGO-21US000886

PATIENT
  Age: 36 Year
  Sex: Female
  Weight: 90.703 kg

DRUGS (6)
  1. CETIRIZINE HYDROCHLORIDE [Suspect]
     Active Substance: CETIRIZINE HYDROCHLORIDE
     Indication: Seasonal allergy
     Dosage: 10 MG, QD
     Route: 048
     Dates: start: 2011
  2. CETIRIZINE HYDROCHLORIDE [Suspect]
     Active Substance: CETIRIZINE HYDROCHLORIDE
     Indication: Withdrawal syndrome
     Dosage: 10 MG, QD
     Route: 048
     Dates: end: 20201211
  3. CETIRIZINE HYDROCHLORIDE [Suspect]
     Active Substance: CETIRIZINE HYDROCHLORIDE
     Dosage: 3/4 TABLET, QD
     Route: 048
     Dates: start: 20201213, end: 20201227
  4. CETIRIZINE HYDROCHLORIDE [Suspect]
     Active Substance: CETIRIZINE HYDROCHLORIDE
     Dosage: 1/2 TABLET, QD
     Route: 048
     Dates: start: 20201228, end: 20210103
  5. CETIRIZINE HYDROCHLORIDE [Suspect]
     Active Substance: CETIRIZINE HYDROCHLORIDE
     Dosage: 1/4 TABLET, QD
     Route: 048
     Dates: start: 20210104, end: 20210111
  6. SEASONIQUE [Concomitant]
     Active Substance: ETHINYL ESTRADIOL\LEVONORGESTREL
     Indication: Contraception
     Dosage: UNKNOWN, UNKNOWN
     Route: 065
     Dates: start: 2016

REACTIONS (18)
  - Drug withdrawal syndrome [Not Recovered/Not Resolved]
  - Pyrexia [Recovered/Resolved]
  - Nausea [Recovered/Resolved]
  - Pruritus [Recovering/Resolving]
  - Skin haemorrhage [Recovered/Resolved]
  - Skin burning sensation [Recovering/Resolving]
  - Headache [Not Recovered/Not Resolved]
  - Menstruation irregular [Recovered/Resolved]
  - Decreased appetite [Recovered/Resolved]
  - Dizziness [Recovered/Resolved]
  - Insomnia [Recovered/Resolved]
  - Breast tenderness [Recovered/Resolved]
  - Oligomenorrhoea [Recovered/Resolved]
  - Confusional state [Recovering/Resolving]
  - Menstrual disorder [Recovered/Resolved]
  - Drug dependence [Recovered/Resolved]
  - Wrong technique in product usage process [Recovered/Resolved]
  - Off label use [Recovered/Resolved]

NARRATIVE: CASE EVENT DATE: 20201211
